FAERS Safety Report 7070427-0 (Version None)
Quarter: 2010Q4

REPORT INFORMATION
  Report Type: 
  Country: None (occurrence: None)
  Receive Date: 20101029
  Receipt Date: 20101021
  Transmission Date: 20110411
  Serious: Yes (Hospitalization)
  Sender: FDA-Public Use
  Company Number: JP-BIOGENIDEC-2010BI037085

PATIENT
  Age: 58 Year
  Sex: Male

DRUGS (3)
  1. AVONEX [Suspect]
     Indication: RELAPSING-REMITTING MULTIPLE SCLEROSIS
     Route: 030
     Dates: start: 20100120
  2. PRIDOL [Concomitant]
     Dates: start: 20100120, end: 20100120
  3. PRIDOL [Concomitant]
     Dates: start: 20100224, end: 20100224

REACTIONS (1)
  - CEREBRAL INFARCTION [None]
